FAERS Safety Report 15438064 (Version 1)
Quarter: 2018Q3

REPORT INFORMATION
  Report Type: Report from Study
  Country: None (occurrence: US)
  Receive Date: 20180928
  Receipt Date: 20180928
  Transmission Date: 20181010
  Serious: Yes (Other)
  Sender: FDA-Public Use
  Company Number: US-ABBVIE-18K-163-2442029-00

PATIENT
  Sex: Female

DRUGS (1)
  1. HUMIRA [Suspect]
     Active Substance: ADALIMUMAB
     Indication: PSORIASIS
     Route: 058

REACTIONS (12)
  - Psoriasis [Unknown]
  - Gastric operation [Unknown]
  - Joint range of motion decreased [Unknown]
  - Skin disorder [Unknown]
  - Mobility decreased [Unknown]
  - Arthralgia [Unknown]
  - Post procedural diarrhoea [Unknown]
  - Precancerous skin lesion [Unknown]
  - Neck pain [Unknown]
  - Back pain [Unknown]
  - Medical device site swelling [Unknown]
  - Paraesthesia [Unknown]
